FAERS Safety Report 4383007-2 (Version None)
Quarter: 2004Q2

REPORT INFORMATION
  Report Type: 
  Country: None (occurrence: None)
  Receive Date: 20040527
  Receipt Date: 20030609
  Transmission Date: 20050107
  Serious: Yes (Other)
  Sender: FDA-Public Use
  Company Number: CVAT2003US00724

PATIENT
  Sex: Female

DRUGS (3)
  1. VOLTAREN [Suspect]
     Indication: MACULAR OEDEMA
     Dosage: 1 GTT, QID, TOPICAL OPHTH.
     Dates: start: 20030415, end: 20030501
  2. LASIX [Concomitant]
  3. METOPROLOL TARTRATE [Concomitant]

REACTIONS (1)
  - CORNEAL THINNING [None]
